FAERS Safety Report 9617492 (Version 2)
Quarter: 2013Q4

REPORT INFORMATION
  Report Type: Spontaneous
  Country: US (occurrence: US)
  Receive Date: 20131011
  Receipt Date: 20131218
  Transmission Date: 20140711
  Serious: Yes (Other)
  Sender: FDA-Public Use
  Company Number: US-GLAXOSMITHKLINE-A1044580A

PATIENT
  Age: 82 Year
  Sex: Female

DRUGS (8)
  1. ADVAIR [Suspect]
     Indication: DYSPNOEA
     Dosage: 1PUFF TWICE PER DAY
     Route: 055
     Dates: start: 201308
  2. MUCINEX [Concomitant]
  3. LOSARTAN WITH HYDROCHLOROTHIAZIDE [Concomitant]
  4. DICLOFENAC [Concomitant]
  5. OMEPRAZOLE [Concomitant]
  6. ZOCOR [Concomitant]
  7. PRO-AIR [Concomitant]
  8. IPRATROPIUM INHALER [Concomitant]

REACTIONS (5)
  - Choking [Unknown]
  - Off label use [Unknown]
  - Retching [Unknown]
  - Productive cough [Unknown]
  - Drug ineffective [Unknown]
